FAERS Safety Report 18344036 (Version 1)
Quarter: 2020Q4

REPORT INFORMATION
  Report Type: Spontaneous
  Country: CL (occurrence: CL)
  Receive Date: 20201005
  Receipt Date: 20201005
  Transmission Date: 20210114
  Serious: Yes (Hospitalization)
  Sender: FDA-Public Use
  Company Number: CL-MACLEODS PHARMACEUTICALS US LTD-MAC2020028273

PATIENT

DRUGS (3)
  1. KALETRA [Suspect]
     Active Substance: LOPINAVIR\RITONAVIR
     Indication: PERINATAL HIV INFECTION
     Dosage: UNK
     Route: 065
  2. TENOFOVIR [Suspect]
     Active Substance: TENOFOVIR
     Indication: PERINATAL HIV INFECTION
     Dosage: UNK
     Route: 065
  3. ABACAVIR. [Suspect]
     Active Substance: ABACAVIR
     Indication: PERINATAL HIV INFECTION
     Dosage: UNK
     Route: 065

REACTIONS (5)
  - Renal tubular dysfunction [Recovered/Resolved]
  - Osteoporosis [Recovered/Resolved]
  - Hip fracture [Recovered/Resolved]
  - Fanconi syndrome [Recovered/Resolved]
  - Wrist fracture [Recovered/Resolved]
